FAERS Safety Report 25884145 (Version 2)
Quarter: 2025Q4

REPORT INFORMATION
  Report Type: Report from Study
  Country: US (occurrence: US)
  Receive Date: 20251006
  Receipt Date: 20251103
  Transmission Date: 20260117
  Serious: No
  Sender: ACADIA PHARMACEUTICALS
  Company Number: US-ACADIA PHARMACEUTICALS INC.-ACA-2025-PIM-010892

PATIENT
  Sex: Male

DRUGS (12)
  1. NUPLAZID [Suspect]
     Active Substance: PIMAVANSERIN TARTRATE
     Indication: Parkinson^s disease
     Dosage: 34 MILLIGRAM, QD
     Route: 048
  2. BUMETANIDE [Concomitant]
     Active Substance: BUMETANIDE
  3. CARBIDOPA\LEVODOPA [Concomitant]
     Active Substance: CARBIDOPA\LEVODOPA
  4. KLOR-CON M20 [Concomitant]
     Active Substance: POTASSIUM CHLORIDE
  5. MIDODRINE [Concomitant]
     Active Substance: MIDODRINE
  6. NEUPRO [Concomitant]
     Active Substance: ROTIGOTINE
     Dosage: 8MG/24HR
  7. QUETIAPINE FUMARATE [Concomitant]
     Active Substance: QUETIAPINE FUMARATE
  8. RYTARY [Concomitant]
     Active Substance: CARBIDOPA\LEVODOPA
  9. ZOLOFT [Concomitant]
     Active Substance: SERTRALINE HYDROCHLORIDE
  10. FLUDROCORTISONE ACETATE [Concomitant]
     Active Substance: FLUDROCORTISONE ACETATE
  11. POTASSIUM CHLORIDE [Concomitant]
     Active Substance: POTASSIUM CHLORIDE
  12. QUETIAPINE [Concomitant]
     Active Substance: QUETIAPINE

REACTIONS (1)
  - Product use issue [Not Recovered/Not Resolved]
